FAERS Safety Report 16754472 (Version 1)
Quarter: 2019Q4

REPORT INFORMATION
  Report Type: Spontaneous
  Country: US (occurrence: US)
  Receive Date: 20190828
  Receipt Date: 20190828
  Transmission Date: 20200122
  Serious: No
  Sender: FDA-Public Use
  Company Number: None

PATIENT
  Sex: Male
  Weight: 112.95 kg

DRUGS (1)
  1. TYVASO [Suspect]
     Active Substance: TREPROSTINIL

REACTIONS (3)
  - Cough [None]
  - Fatigue [None]
  - Throat irritation [None]
